FAERS Safety Report 15233290 (Version 2)
Quarter: 2018Q3

REPORT INFORMATION
  Report Type: Report from Study
  Country: US (occurrence: US)
  Receive Date: 20180802
  Receipt Date: 20180828
  Transmission Date: 20181010
  Serious: Yes (Hospitalization)
  Sender: FDA-Public Use
  Company Number: US-EXELIXIS-CABO-18015072

PATIENT
  Sex: Female

DRUGS (3)
  1. CABOMETYX [Suspect]
     Active Substance: CABOZANTINIB S-MALATE
     Dosage: 60 MG, QD (EVERY MORNING)
     Route: 048
     Dates: start: 20180716
  2. OPDIVO [Suspect]
     Active Substance: NIVOLUMAB
     Indication: RENAL CANCER
     Dosage: UNK
  3. CABOMETYX [Suspect]
     Active Substance: CABOZANTINIB S-MALATE
     Indication: RENAL CANCER
     Dosage: 60 MG, QD (EVERY MORNING)
     Route: 048
     Dates: start: 20180702, end: 20180706

REACTIONS (7)
  - Dry skin [Unknown]
  - Blood pressure increased [Unknown]
  - Blood glucose fluctuation [Recovering/Resolving]
  - Tongue discolouration [Unknown]
  - Pruritus [Recovering/Resolving]
  - Glossodynia [Unknown]
  - Skin ulcer [Unknown]

NARRATIVE: CASE EVENT DATE: 2018
